FAERS Safety Report 4612642-9 (Version None)
Quarter: 2005Q1

REPORT INFORMATION
  Report Type: 
  Country: None (occurrence: None)
  Receive Date: 20050316
  Receipt Date: 20050316
  Transmission Date: 20050727
  Serious: No
  Sender: FDA-Public Use
  Company Number: None

PATIENT
  Age: 51 Year
  Sex: Male
  Weight: 99.7913 kg

DRUGS (1)
  1. TEQUIN [Suspect]
     Indication: INFECTION
     Dosage: 1 DAILY ORAL
     Route: 048
     Dates: start: 20050303, end: 20050316

REACTIONS (4)
  - DYSPNOEA [None]
  - HYPERAESTHESIA [None]
  - PRODUCTIVE COUGH [None]
  - SINUS DISORDER [None]
